FAERS Safety Report 11737056 (Version 2)
Quarter: 2015Q4

REPORT INFORMATION
  Report Type: Spontaneous
  Country: US (occurrence: US)
  Receive Date: 20151113
  Receipt Date: 20151125
  Transmission Date: 20160304
  Serious: Yes (Hospitalization, Other)
  Sender: FDA-Public Use
  Company Number: US-ACORDA-ACO_119154_2015

PATIENT
  Age: 62 Year
  Sex: Female

DRUGS (2)
  1. AMPYRA [Suspect]
     Active Substance: DALFAMPRIDINE
     Indication: DYSSTASIA
  2. AMPYRA [Suspect]
     Active Substance: DALFAMPRIDINE
     Indication: ASTHENIA
     Dosage: 10 MG, BID
     Route: 048
     Dates: start: 20140515

REACTIONS (4)
  - Off label use [Unknown]
  - Lower limb fracture [Not Recovered/Not Resolved]
  - Therapy cessation [Recovered/Resolved]
  - Fall [Not Recovered/Not Resolved]

NARRATIVE: CASE EVENT DATE: 20151026
